FAERS Safety Report 6259191-2 (Version None)
Quarter: 2009Q3

REPORT INFORMATION
  Report Type: 
  Country: None (occurrence: None)
  Receive Date: 20090707
  Receipt Date: 20090624
  Transmission Date: 20100115
  Serious: Yes (Death)
  Sender: FDA-Public Use
  Company Number: JP-AVENTIS-200916528GDDC

PATIENT
  Age: 68 Year
  Sex: Male

DRUGS (7)
  1. G-CSF (LENOGRASTIM UNKNOWN) [Suspect]
     Dosage: DOSE: UNK
  2. DOCETAXEL [Suspect]
     Indication: LUNG ADENOCARCINOMA
     Dosage: DOSE: UNK
  3. CARBOPLATIN [Suspect]
     Indication: LUNG ADENOCARCINOMA
     Dosage: DOSE: UNK
  4. CISPLATIN [Suspect]
     Indication: LUNG ADENOCARCINOMA
     Dosage: DOSE: UNK
  5. VINORELBINE [Suspect]
     Indication: LUNG ADENOCARCINOMA
     Dosage: DOSE: UNK
  6. TS-1 [Suspect]
     Indication: LUNG ADENOCARCINOMA
     Dosage: DOSE: UNK
  7. GEMCITABINE [Suspect]
     Indication: LUNG ADENOCARCINOMA
     Dosage: DOSE: UNK

REACTIONS (2)
  - DISEASE PROGRESSION [None]
  - PULMONARY EMBOLISM [None]
